FAERS Safety Report 12985717 (Version 1)
Quarter: 2016Q4

REPORT INFORMATION
  Report Type: Spontaneous
  Country: US (occurrence: US)
  Receive Date: 20161130
  Receipt Date: 20161130
  Transmission Date: 20170207
  Serious: Yes (Hospitalization)
  Sender: FDA-Public Use
  Company Number: US-CLINIGEN GROUP PLC/ CLINIGEN HEALTHCARE LTD-E2B_00000415

PATIENT
  Age: 70 Year
  Sex: Male
  Weight: 82.6 kg

DRUGS (12)
  1. ETHYOL [Suspect]
     Active Substance: AMIFOSTINE
     Indication: RADIATION INJURY
     Route: 058
     Dates: start: 20060620
  2. UNKNOWN CHEMOTHERAPY DRUG [Concomitant]
     Active Substance: UNSPECIFIED INGREDIENT
  3. LEVAQUIN [Concomitant]
     Active Substance: LEVOFLOXACIN
  4. ZOFRAN [Concomitant]
     Active Substance: ONDANSETRON HYDROCHLORIDE
  5. HYDROCHLOROTHIAZIDE. [Concomitant]
     Active Substance: HYDROCHLOROTHIAZIDE
  6. ASPIRIN. [Concomitant]
     Active Substance: ASPIRIN
  7. COZAAR [Concomitant]
     Active Substance: LOSARTAN POTASSIUM
  8. ATENOLOL. [Concomitant]
     Active Substance: ATENOLOL
  9. ETHYOL [Suspect]
     Active Substance: AMIFOSTINE
     Indication: PROPHYLAXIS
     Route: 058
     Dates: start: 20060620
  10. RADIATION THERAPY [Concomitant]
     Active Substance: RADIATION THERAPY
  11. METFORMIN [Concomitant]
     Active Substance: METFORMIN HYDROCHLORIDE
  12. FLONASE [Concomitant]
     Active Substance: FLUTICASONE PROPIONATE

REACTIONS (8)
  - Pyrexia [Unknown]
  - Dyspepsia [Unknown]
  - Nausea [Unknown]
  - Hypertension [Unknown]
  - Rash generalised [Unknown]
  - Herpes zoster [Unknown]
  - Hyperhidrosis [Unknown]
  - Haemophilus infection [Unknown]

NARRATIVE: CASE EVENT DATE: 20060619
